FAERS Safety Report 8052454-X (Version None)
Quarter: 2012Q1

REPORT INFORMATION
  Report Type: 
  Country: None (occurrence: None)
  Receive Date: 20120118
  Receipt Date: 20120112
  Transmission Date: 20120608
  Serious: Yes (Other)
  Sender: FDA-Public Use
  Company Number: US-PFIZER INC-2012009499

PATIENT
  Sex: Male

DRUGS (1)
  1. DILANTIN [Suspect]
     Dosage: 200 MG BY MOUTH EVERY AM
     Route: 048

REACTIONS (2)
  - IMPAIRED WORK ABILITY [None]
  - CONVULSION [None]
